FAERS Safety Report 10168029 (Version 2)
Quarter: 2014Q2

REPORT INFORMATION
  Report Type: Spontaneous
  Country: US (occurrence: US)
  Receive Date: 20140512
  Receipt Date: 20140527
  Transmission Date: 20141212
  Serious: Yes (Life-Threatening, Hospitalization, Other)
  Sender: FDA-Public Use
  Company Number: US-PFIZER INC-2014129561

PATIENT
  Age: 71 Year
  Sex: Female
  Weight: 67.57 kg

DRUGS (3)
  1. CELEBREX [Suspect]
     Indication: BREAST CANCER
     Dosage: UNK
     Route: 048
  2. ARIMIDEX [Concomitant]
     Indication: BREAST CANCER
     Dosage: UNK
  3. VYTORIN [Concomitant]
     Dosage: UNK

REACTIONS (2)
  - Sepsis [Unknown]
  - Escherichia infection [Unknown]
